FAERS Safety Report 8477408-0 (Version None)
Quarter: 2012Q2

REPORT INFORMATION
  Report Type: 
  Country: None (occurrence: None)
  Receive Date: 20120629
  Receipt Date: 20120619
  Transmission Date: 20120825
  Serious: Yes (Hospitalization)
  Sender: FDA-Public Use
  Company Number: US-BAYER-2012-062402

PATIENT
  Age: 36 Year
  Sex: Female
  Weight: 78 kg

DRUGS (6)
  1. YAZ [Suspect]
  2. YASMIN [Suspect]
     Indication: MENSTRUAL CYCLE MANAGEMENT
  3. IBUPROFEN (ADVIL) [Concomitant]
     Indication: HEADACHE
     Dosage: UNK
     Dates: end: 20090705
  4. DARVOCET [Concomitant]
  5. ACETAMINOPHEN [Concomitant]
  6. YASMIN [Suspect]
     Indication: CONTRACEPTION

REACTIONS (1)
  - INTRACRANIAL VENOUS SINUS THROMBOSIS [None]
